FAERS Safety Report 18647897 (Version 1)
Quarter: 2020Q4

REPORT INFORMATION
  Report Type: Spontaneous
  Country: FR (occurrence: FR)
  Receive Date: 20201222
  Receipt Date: 20201222
  Transmission Date: 20210114
  Serious: Yes (Hospitalization)
  Sender: FDA-Public Use
  Company Number: FR-TEVA-2020-FR-1859631

PATIENT
  Age: 35 Year
  Sex: Male
  Weight: 56 kg

DRUGS (10)
  1. BACTRIM [Suspect]
     Active Substance: SULFAMETHOXAZOLE\TRIMETHOPRIM
     Indication: ANTIFUNGAL PROPHYLAXIS
     Dosage: 1 DF
     Route: 048
     Dates: start: 20151222, end: 20160129
  2. SPECIAFOLDINE [Concomitant]
     Active Substance: FOLIC ACID
  3. AMOXICILLINE [Suspect]
     Active Substance: AMOXICILLIN
     Indication: INFECTION
     Route: 048
     Dates: start: 20160122
  4. AMLOR [Concomitant]
     Active Substance: AMLODIPINE BESYLATE
  5. ADENURIC [Concomitant]
     Active Substance: FEBUXOSTAT
  6. ARANESP [Concomitant]
     Active Substance: DARBEPOETIN ALFA
  7. PROGRAF [Concomitant]
     Active Substance: TACROLIMUS
  8. PREDNISONE. [Concomitant]
     Active Substance: PREDNISONE
  9. NEBILOX [Concomitant]
     Active Substance: NEBIVOLOL HYDROCHLORIDE
  10. MYFORTIC [Suspect]
     Active Substance: MYCOPHENOLATE SODIUM
     Indication: PROPHYLAXIS AGAINST TRANSPLANT REJECTION
     Dosage: 360 MG
     Route: 048
     Dates: start: 20151205

REACTIONS (1)
  - Aplasia [Recovered/Resolved]

NARRATIVE: CASE EVENT DATE: 20160129
